FAERS Safety Report 10466538 (Version 2)
Quarter: 2014Q3

REPORT INFORMATION
  Report Type: Spontaneous
  Country: JP (occurrence: JP)
  Receive Date: 20140922
  Receipt Date: 20140930
  Transmission Date: 20150326
  Serious: Yes (Death)
  Sender: FDA-Public Use
  Company Number: JP-JNJFOC-20140916829

PATIENT
  Age: 75 Year
  Sex: Female

DRUGS (7)
  1. TRAMCET [Suspect]
     Active Substance: ACETAMINOPHEN\TRAMADOL
     Indication: PRODUCT USED FOR UNKNOWN INDICATION
     Dosage: 1 DOSE, 3 TABLETS ONCE A DAY
     Route: 048
     Dates: start: 20140912, end: 20140916
  2. TOLEDOMIN [Concomitant]
     Active Substance: MILNACIPRAN HYDROCHLORIDE
     Indication: PRODUCT USED FOR UNKNOWN INDICATION
     Dosage: 25 MG X 1 PER 1 DAY / TABLET
     Route: 048
  3. PRIMPERAN [Concomitant]
     Active Substance: METOCLOPRAMIDE HYDROCHLORIDE
     Indication: PRODUCT USED FOR UNKNOWN INDICATION
     Dosage: 10 MG X 1 PER 1 DAY
     Route: 048
  4. EDIROL [Concomitant]
     Active Substance: ELDECALCITOL
     Indication: PRODUCT USED FOR UNKNOWN INDICATION
     Dosage: 0.75 ?G X 1 PER 1 DAY
     Route: 048
  5. LUDIOMIL [Concomitant]
     Active Substance: MAPROTILINE HYDROCHLORIDE
     Indication: PRODUCT USED FOR UNKNOWN INDICATION
     Route: 048
  6. HALCION [Concomitant]
     Active Substance: TRIAZOLAM
     Indication: PRODUCT USED FOR UNKNOWN INDICATION
     Dosage: 0.25 MG X 1 PER 1 DAY
     Route: 048
  7. ROHYPNOL [Concomitant]
     Active Substance: FLUNITRAZEPAM
     Indication: PRODUCT USED FOR UNKNOWN INDICATION
     Dosage: 0.5 MG X 1 PER 1 DAY
     Route: 048

REACTIONS (5)
  - Dysarthria [Unknown]
  - Somnolence [Unknown]
  - Aspiration [Fatal]
  - Abnormal behaviour [Unknown]
  - Feeling abnormal [Unknown]

NARRATIVE: CASE EVENT DATE: 201409
